FAERS Safety Report 24132171 (Version 1)
Quarter: 2024Q3

REPORT INFORMATION
  Report Type: Spontaneous
  Country: FI (occurrence: FI)
  Receive Date: 20240724
  Receipt Date: 20240724
  Transmission Date: 20241016
  Serious: Yes (Death, Other)
  Sender: BAXTER
  Company Number: None

PATIENT
  Age: 42 Year
  Sex: Male

DRUGS (2)
  1. PROPOFOL [Suspect]
     Active Substance: PROPOFOL
     Indication: Sedation
     Dosage: (DOSAGE TEXT: 4-5 MG/KG/HOUR. 4-5MG/KG/HOUR)
     Route: 042
     Dates: start: 20240524, end: 20240529
  2. PROPOFOL [Suspect]
     Active Substance: PROPOFOL
     Indication: Intracranial pressure increased

REACTIONS (12)
  - Myoglobin blood increased [Fatal]
  - Anuria [Fatal]
  - Blood triglycerides increased [Fatal]
  - Blood creatine phosphokinase increased [Fatal]
  - Cardiovascular insufficiency [Fatal]
  - Acidosis [Fatal]
  - Arrhythmia [Fatal]
  - Ventricular tachycardia [Fatal]
  - Propofol infusion syndrome [Fatal]
  - Cardiac flutter [Fatal]
  - Supraventricular extrasystoles [Fatal]
  - Hyperlactacidaemia [Fatal]

NARRATIVE: CASE EVENT DATE: 20240529
